FAERS Safety Report 22030995 (Version 2)
Quarter: 2023Q2

REPORT INFORMATION
  Report Type: Spontaneous
  Country: CH (occurrence: CH)
  Receive Date: 20230223
  Receipt Date: 20230406
  Transmission Date: 20230721
  Serious: Yes (Other)
  Sender: FDA-Public Use
  Company Number: CH-SEATTLE GENETICS-2023SGN01776

PATIENT
  Age: 51 Year
  Sex: Female

DRUGS (9)
  1. TUKYSA [Suspect]
     Active Substance: TUCATINIB
     Indication: Breast cancer
     Dosage: 300 MG, BID
     Route: 065
     Dates: start: 20200919, end: 20201009
  2. TUKYSA [Suspect]
     Active Substance: TUCATINIB
     Indication: HER2 positive breast cancer
     Dosage: 250 MG, BID
     Route: 065
     Dates: start: 20201026, end: 20201130
  3. TUKYSA [Suspect]
     Active Substance: TUCATINIB
     Dosage: 250 MG, BID
     Route: 065
     Dates: start: 20210121
  4. TUKYSA [Suspect]
     Active Substance: TUCATINIB
     Dosage: 300 MG, BID
     Route: 065
     Dates: start: 20210401
  5. CAPECITABINE [Suspect]
     Active Substance: CAPECITABINE
     Indication: Breast cancer
     Dosage: 1000 MG/M2
     Route: 065
     Dates: start: 20200919, end: 20201009
  6. CAPECITABINE [Suspect]
     Active Substance: CAPECITABINE
     Indication: HER2 positive breast cancer
     Dosage: UNK
     Route: 065
     Dates: end: 20221130
  7. CAPECITABINE [Suspect]
     Active Substance: CAPECITABINE
     Dosage: 75% OF 1000 MG 2X/DAY, EVERY OTHER WEEK
     Route: 065
     Dates: start: 20210121
  8. TRASTUZUMAB [Suspect]
     Active Substance: TRASTUZUMAB
     Indication: Breast cancer
     Dosage: UNK
     Route: 065
     Dates: start: 20200919, end: 20201009
  9. TRASTUZUMAB [Suspect]
     Active Substance: TRASTUZUMAB
     Indication: HER2 positive breast cancer

REACTIONS (7)
  - Lung abscess [Recovered/Resolved with Sequelae]
  - Thrombocytopenia [Recovered/Resolved]
  - Brain oedema [Recovering/Resolving]
  - Malignant neoplasm progression [Recovering/Resolving]
  - Asthenia [Recovered/Resolved]
  - Hypercreatininaemia [Not Recovered/Not Resolved]
  - Diarrhoea [Recovered/Resolved]

NARRATIVE: CASE EVENT DATE: 20190124
